FAERS Safety Report 25341500 (Version 1)
Quarter: 2025Q2

REPORT INFORMATION
  Report Type: Spontaneous
  Country: CA (occurrence: CA)
  Receive Date: 20250521
  Receipt Date: 20250521
  Transmission Date: 20250717
  Serious: Yes (Hospitalization)
  Sender: PFIZER
  Company Number: CA-PFIZER INC-202500104860

PATIENT
  Age: 71 Year
  Sex: Female
  Weight: 85 kg

DRUGS (28)
  1. FRAGMIN [Suspect]
     Active Substance: DALTEPARIN SODIUM
     Indication: Arteriosclerosis
     Dosage: 5000 IU, DAILY
     Route: 058
  2. DABIGATRAN [Suspect]
     Active Substance: DABIGATRAN
     Indication: Arteriosclerosis
     Dosage: 75 MG, 1X/DAY (FOR 2 DAYS)
     Route: 048
  3. ACETAMINOPHEN [Concomitant]
     Active Substance: ACETAMINOPHEN
  4. ASPIRIN [Concomitant]
     Active Substance: ASPIRIN
  5. AMITRIPTYLINE [Concomitant]
     Active Substance: AMITRIPTYLINE
  6. ATORVASTATIN [Concomitant]
     Active Substance: ATORVASTATIN
  7. BISOPROLOL [Concomitant]
     Active Substance: BISOPROLOL
  8. CALCIUM CARBONATE [Concomitant]
     Active Substance: CALCIUM CARBONATE
  9. DENOSUMAB [Concomitant]
     Active Substance: DENOSUMAB
  10. DIMENHYDRINATE [Concomitant]
     Active Substance: DIMENHYDRINATE
  11. ESOMEPRAZOLE [Concomitant]
     Active Substance: ESOMEPRAZOLE
  12. FILGRASTIM [Concomitant]
     Active Substance: FILGRASTIM
  13. HYDRALAZINE [Concomitant]
     Active Substance: HYDRALAZINE HYDROCHLORIDE
  14. HYDROMORPHONE [Concomitant]
     Active Substance: HYDROMORPHONE
  15. IBRANCE [Concomitant]
     Active Substance: PALBOCICLIB
  16. LETROZOLE [Concomitant]
     Active Substance: LETROZOLE
  17. LORAZEPAM [Concomitant]
     Active Substance: LORAZEPAM
  18. MORPHINE [Concomitant]
     Active Substance: MORPHINE
  19. PANTOPRAZOLE [Concomitant]
     Active Substance: PANTOPRAZOLE
  20. PERINDOPRIL [Concomitant]
     Active Substance: PERINDOPRIL
  21. PIPERACILLIN SODIUM\TAZOBACTAM SODIUM [Concomitant]
     Active Substance: PIPERACILLIN SODIUM\TAZOBACTAM SODIUM
  22. PREGABALIN [Concomitant]
     Active Substance: PREGABALIN
  23. QUETIAPINE [Concomitant]
     Active Substance: QUETIAPINE
  24. ALBUTEROL [Concomitant]
     Active Substance: ALBUTEROL
  25. TRAZODONE [Concomitant]
     Active Substance: TRAZODONE HYDROCHLORIDE
  26. VENLAFAXINE HCL [Concomitant]
     Active Substance: VENLAFAXINE HYDROCHLORIDE
  27. VITAMIN B1 [Concomitant]
     Active Substance: THIAMINE HYDROCHLORIDE
  28. VITAMIN D NOS [Concomitant]
     Active Substance: CHOLECALCIFEROL\ERGOCALCIFEROL

REACTIONS (3)
  - Ulcer [Recovered/Resolved]
  - Upper gastrointestinal haemorrhage [Recovered/Resolved]
  - Off label use [Unknown]
